FAERS Safety Report 15662648 (Version 1)
Quarter: 2018Q4

REPORT INFORMATION
  Report Type: Spontaneous
  Country: US (occurrence: US)
  Receive Date: 20181127
  Receipt Date: 20181127
  Transmission Date: 20190205
  Serious: No
  Sender: FDA-Public Use
  Company Number: US-SA-2018SA142432

PATIENT
  Sex: Female

DRUGS (1)
  1. TOUJEO [Suspect]
     Active Substance: INSULIN GLARGINE
     Dosage: 40 U, QD
     Route: 058

REACTIONS (3)
  - Anxiety [Unknown]
  - Weight increased [Unknown]
  - Glycosylated haemoglobin increased [Unknown]
